FAERS Safety Report 8049243-9 (Version None)
Quarter: 2012Q1

REPORT INFORMATION
  Report Type: 
  Country: None (occurrence: None)
  Receive Date: 20120117
  Receipt Date: 20120112
  Transmission Date: 20120608
  Serious: Yes (Other)
  Sender: FDA-Public Use
  Company Number: DE-ROCHE-1030110

PATIENT
  Age: 38 Year
  Sex: Female

DRUGS (1)
  1. CLONAZEPAM [Suspect]
     Indication: EPILEPSY
     Route: 048

REACTIONS (4)
  - GAIT DISTURBANCE [None]
  - GLAUCOMA [None]
  - FALL [None]
  - FEMORAL NECK FRACTURE [None]
